FAERS Safety Report 11081116 (Version 6)
Quarter: 2015Q2

REPORT INFORMATION
  Report Type: Report from Study
  Country: FR (occurrence: FR)
  Receive Date: 20150501
  Receipt Date: 20150616
  Transmission Date: 20150821
  Serious: Yes (Death, Hospitalization)
  Sender: FDA-Public Use
  Company Number: FR-CELGENE-FRA-2015044733

PATIENT
  Age: 74 Year
  Sex: Female
  Weight: 68 kg

DRUGS (15)
  1. IXPRIM [Concomitant]
     Active Substance: ACETAMINOPHEN\TRAMADOL HYDROCHLORIDE
     Indication: PRODUCT USED FOR UNKNOWN INDICATION
     Route: 048
     Dates: start: 201504, end: 201504
  2. VALSARTAN. [Concomitant]
     Active Substance: VALSARTAN
     Indication: PRODUCT USED FOR UNKNOWN INDICATION
     Route: 048
     Dates: start: 2014, end: 201504
  3. DOLIPRANE [Concomitant]
     Active Substance: ACETAMINOPHEN
     Indication: PALLIATIVE CARE
     Route: 065
  4. TOPALGIC [Concomitant]
     Active Substance: TRAMADOL
     Dosage: 3
     Route: 065
  5. DAFALGAN [Concomitant]
     Active Substance: ACETAMINOPHEN
     Indication: PRODUCT USED FOR UNKNOWN INDICATION
     Route: 048
     Dates: start: 201504, end: 201504
  6. INEXIUM [Concomitant]
     Active Substance: ESOMEPRAZOLE
     Indication: PALLIATIVE CARE
     Route: 065
  7. VALSARTAN. [Concomitant]
     Active Substance: VALSARTAN
     Dosage: 112.5 MILLIGRAM
     Route: 065
  8. DUPHALAC [Concomitant]
     Active Substance: LACTULOSE
     Indication: PRODUCT USED FOR UNKNOWN INDICATION
     Route: 048
     Dates: start: 2014, end: 201504
  9. CORTANCYL [Concomitant]
     Active Substance: PREDNISONE
     Indication: PALLIATIVE CARE
     Route: 065
  10. TOPALGIC [Concomitant]
     Active Substance: TRAMADOL
     Indication: PALLIATIVE CARE
     Route: 065
  11. XANAX [Concomitant]
     Active Substance: ALPRAZOLAM
     Indication: PALLIATIVE CARE
     Dosage: 80 MILLIGRAM
     Route: 065
  12. XYZAL [Concomitant]
     Active Substance: LEVOCETIRIZINE DIHYDROCHLORIDE
     Indication: PRODUCT USED FOR UNKNOWN INDICATION
     Route: 065
  13. AZACITIDINE INJECTABLE [Suspect]
     Active Substance: AZACITIDINE
     Indication: MYELODYSPLASTIC SYNDROME
     Dosage: 132 MILLIGRAM
     Route: 041
     Dates: start: 20150316, end: 20150322
  14. DUPHALAC [Concomitant]
     Active Substance: LACTULOSE
     Route: 065
  15. VOLTARENE [Concomitant]
     Active Substance: DICLOFENAC SODIUM
     Indication: PRODUCT USED FOR UNKNOWN INDICATION
     Dosage: APPLICATION
     Route: 048
     Dates: start: 2014, end: 201504

REACTIONS (2)
  - Tumour lysis syndrome [Not Recovered/Not Resolved]
  - Acute myeloid leukaemia [Fatal]

NARRATIVE: CASE EVENT DATE: 20150404
